FAERS Safety Report 10504296 (Version 2)
Quarter: 2014Q4

REPORT INFORMATION
  Report Type: Spontaneous
  Country: SE (occurrence: SE)
  Receive Date: 20141008
  Receipt Date: 20141008
  Transmission Date: 20150528
  Serious: Yes (Other)
  Sender: FDA-Public Use
  Company Number: SE-ELI_LILLY_AND_COMPANY-SE201203004296

PATIENT
  Sex: Male

DRUGS (1)
  1. ZYPREXA [Suspect]
     Active Substance: OLANZAPINE
     Indication: PRODUCT USED FOR UNKNOWN INDICATION
     Dosage: UNK, UNKNOWN
     Route: 065

REACTIONS (13)
  - Gastrointestinal disorder [Unknown]
  - Lactose intolerance [Unknown]
  - Orthostatic hypotension [Unknown]
  - Abnormal dreams [Unknown]
  - Anxiety [Unknown]
  - Flat affect [Unknown]
  - Accommodation disorder [Unknown]
  - Suicidal ideation [Unknown]
  - Depression [Unknown]
  - Withdrawal syndrome [Unknown]
  - Apathy [Unknown]
  - Somnolence [Unknown]
  - Aggression [Unknown]

NARRATIVE: CASE EVENT DATE: 2008
